FAERS Safety Report 9651979 (Version 1)
Quarter: 2013Q4

REPORT INFORMATION
  Report Type: Spontaneous
  Country: FR (occurrence: None)
  Receive Date: 20131025
  Receipt Date: 20131025
  Transmission Date: 20140711
  Serious: Yes (Hospitalization)
  Sender: FDA-Public Use
  Company Number: DSM-2013-00967

PATIENT
  Age: 76 Year
  Sex: Female
  Weight: 70 kg

DRUGS (2)
  1. OLMETEC [Suspect]
     Indication: HYPERTENSION
     Route: 048
     Dates: end: 20130901
  2. LEVOTHYROXINE SODIUM (LEVOTHYROXINE SODIUM) (LEVOTHYROXINE SODIUM) [Concomitant]

REACTIONS (11)
  - Diarrhoea [None]
  - Renal failure acute [None]
  - Hypovolaemic shock [None]
  - General physical health deterioration [None]
  - Malaise [None]
  - Dehydration [None]
  - Livedo reticularis [None]
  - Diverticulum [None]
  - Large intestine polyp [None]
  - Colitis ulcerative [None]
  - Metabolic acidosis [None]
